FAERS Safety Report 7037675-7 (Version None)
Quarter: 2010Q4

REPORT INFORMATION
  Report Type: 
  Country: None (occurrence: None)
  Receive Date: 20101011
  Receipt Date: 20101005
  Transmission Date: 20110411
  Serious: Yes (Death, Other)
  Sender: FDA-Public Use
  Company Number: US-BAYER-201041634GPV

PATIENT
  Age: 69 Year
  Sex: Male

DRUGS (3)
  1. FLUDARABINE [Suspect]
     Indication: CHRONIC LYMPHOCYTIC LEUKAEMIA
     Dosage: 6 CYCLES
  2. RITUXIMAB [Suspect]
     Indication: CHRONIC LYMPHOCYTIC LEUKAEMIA
     Dosage: FIVE CYCLES: 375 MG/M2 (800 MG)
  3. RITUXIMAB [Suspect]

REACTIONS (14)
  - EPSTEIN-BARR VIRUS ASSOCIATED LYMPHOPROLIFERATIVE DISORDER [None]
  - HODGKIN'S DISEASE [None]
  - LYMPHADENOPATHY [None]
  - MALNUTRITION [None]
  - MENTAL STATUS CHANGES [None]
  - METABOLIC ACIDOSIS [None]
  - MULTI-ORGAN FAILURE [None]
  - NASAL INFLAMMATION [None]
  - PANCYTOPENIA [None]
  - PHARYNGEAL MASS [None]
  - PLASMABLASTIC LYMPHOMA [None]
  - PNEUMONIA [None]
  - RENAL FAILURE [None]
  - STOMATITIS [None]
